FAERS Safety Report 16944118 (Version 2)
Quarter: 2019Q4

REPORT INFORMATION
  Report Type: Spontaneous
  Country: DE (occurrence: DE)
  Receive Date: 20191022
  Receipt Date: 20191029
  Transmission Date: 20200122
  Serious: Yes (Hospitalization, Other)
  Sender: FDA-Public Use
  Company Number: DE-AUROBINDO-AUR-APL-2019-054142

PATIENT
  Sex: Female
  Weight: 57 kg

DRUGS (3)
  1. LETROZOLE PUREN [Suspect]
     Active Substance: LETROZOLE
     Indication: BREAST CANCER METASTATIC
     Dosage: 2.5 MILLIGRAM, Q28D
     Route: 048
     Dates: start: 20180731, end: 20190429
  2. KISQALI [Suspect]
     Active Substance: RIBOCICLIB
     Indication: BREAST CANCER METASTATIC
     Dosage: 600 MILLIGRAM, (21D/Q28D)
     Route: 048
     Dates: start: 20180731, end: 20180827
  3. KISQALI [Suspect]
     Active Substance: RIBOCICLIB
     Dosage: 600 MILLIGRAM, (21D/Q28D)
     Route: 048
     Dates: start: 20180911, end: 20190429

REACTIONS (10)
  - Fatigue [Recovered/Resolved]
  - Fracture [Recovered/Resolved]
  - Dry skin [Recovered/Resolved]
  - Diarrhoea [Not Recovered/Not Resolved]
  - Toothache [Recovered/Resolved]
  - Arthralgia [Not Recovered/Not Resolved]
  - Anaemia [Recovered/Resolved]
  - Myalgia [Not Recovered/Not Resolved]
  - Headache [Recovered/Resolved]
  - Weight increased [Unknown]

NARRATIVE: CASE EVENT DATE: 20180817
